FAERS Safety Report 24001689 (Version 1)
Quarter: 2024Q2

REPORT INFORMATION
  Report Type: Spontaneous
  Country: US (occurrence: US)
  Receive Date: 20240621
  Receipt Date: 20240621
  Transmission Date: 20240716
  Serious: No
  Sender: FDA-Public Use
  Company Number: US-009507513-2406USA007025

PATIENT
  Age: 69 Year
  Sex: Male
  Weight: 60 kg

DRUGS (24)
  1. NOXAFIL [Suspect]
     Active Substance: POSACONAZOLE
     Indication: Antifungal prophylaxis
     Dosage: 3 TABLETS EVERY 24 HOURS / 300 MG ONCE PER DAY (QD)
     Route: 048
     Dates: end: 20231224
  2. NOXAFIL [Suspect]
     Active Substance: POSACONAZOLE
     Dosage: 3 TABLETS EVERY 24 HOURS / 300 MG ONCE PER DAY (QD)
     Route: 048
     Dates: start: 20231227
  3. PREVYMIS [Concomitant]
     Active Substance: LETERMOVIR
     Indication: Allogenic stem cell transplantation
     Dosage: 1 TABLET, DAILY
     Route: 048
     Dates: start: 202210
  4. PREVYMIS [Concomitant]
     Active Substance: LETERMOVIR
     Dosage: 1 TABLET, DAILY
     Route: 048
     Dates: start: 202303, end: 202310
  5. PREVYMIS [Concomitant]
     Active Substance: LETERMOVIR
     Dosage: 1 TABLET, DAILY
     Route: 048
     Dates: end: 20240604
  6. PROGRAF [Concomitant]
     Active Substance: TACROLIMUS
     Dosage: 0.25 ML 2 TIMES DAILY (BID)
     Route: 048
  7. VALTREX [Concomitant]
     Active Substance: VALACYCLOVIR HYDROCHLORIDE
     Dosage: 1 TABLET 2 TIMES DAILY (BID)
     Route: 048
  8. IMMUNE GLOBULIN NOS [Concomitant]
     Active Substance: IMMUNE GLOBULIN NOS
  9. REZUROCK [Concomitant]
     Active Substance: BELUMOSUDIL
     Dosage: 1 TABLET 2 TIME DAILY (BID)
     Route: 048
  10. GAMMAGARD LIQUID [Concomitant]
     Active Substance: HUMAN IMMUNOGLOBULIN G
     Dosage: INJECT 300 ML INTO THE VEIN EVERY 28 DAYS; STRENGTH: 10G/1100ML; FORM: INTRAVENOUS SOLUTION
  11. CHOLECALCIFEROL [Concomitant]
     Active Substance: CHOLECALCIFEROL
     Dosage: 1 CAPSULE ONE TIME WEEKLY; STRENGTH: 50000 UT);
     Route: 048
  12. DAPSONE [Concomitant]
     Active Substance: DAPSONE
     Dosage: 1 TABLET DAILY (QD)
     Route: 048
  13. DECADRON [Concomitant]
     Active Substance: DEXAMETHASONE
     Indication: Oral pain
     Dosage: SWISH ANS SPIT 5 ML, 3 TIMES DAILY AS NEEDED (PRN); STRENGTH: 0.5 MG/5 ML
     Route: 048
  14. NEXIUM [Concomitant]
     Active Substance: ESOMEPRAZOLE MAGNESIUM
     Dosage: 1 CAPSULE DAILY. TAKE 30 MIN BEFORE FOOD
     Route: 048
  15. FOLIC ACID [Concomitant]
     Active Substance: FOLIC ACID
     Dosage: 1 TABLET DAILY
     Route: 048
  16. CORTEF [Concomitant]
     Active Substance: HYDROCORTISONE
     Dosage: 2 TABLETS EVERY MORNING AND 1 TABLET  AT 1 PM , DAILY
     Route: 048
  17. ATROVENT [Concomitant]
     Active Substance: IPRATROPIUM BROMIDE
     Dosage: 1 SPRAY IN EACH NOSTRIL, TID
     Route: 045
  18. SYNTHROID [Concomitant]
     Active Substance: LEVOTHYROXINE SODIUM
     Dosage: 1 TABLET DAILY BEFORE BREASKFAST
     Route: 048
  19. MAGNESIUM OXIDE [Concomitant]
     Active Substance: MAGNESIUM OXIDE
     Dosage: 800 MG BID
     Route: 048
  20. VEETIDS [Concomitant]
     Active Substance: PENICILLIN V POTASSIUM
     Dosage: 2 TABLETS BID
     Route: 048
  21. LYRICA [Concomitant]
     Active Substance: PREGABALIN
     Dosage: 50 MILLIGRAM, BID
     Route: 048
  22. TYRVAYA [Concomitant]
     Active Substance: VARENICLINE TARTRATE
     Dosage: 1 SPRAY, BID ; STRENGTH: 0.03 MG/ACT SOLN
     Route: 045
  23. VENETOCLAX [Concomitant]
     Active Substance: VENETOCLAX
     Dosage: UNK
     Dates: end: 2022
  24. VENETOCLAX [Concomitant]
     Active Substance: VENETOCLAX
     Dosage: RAMP-UP
     Dates: start: 20220914

REACTIONS (1)
  - Product dose omission issue [Unknown]

NARRATIVE: CASE EVENT DATE: 20231225
